FAERS Safety Report 7685624-0 (Version None)
Quarter: 2011Q3

REPORT INFORMATION
  Report Type: 
  Country: None (occurrence: None)
  Receive Date: 20110816
  Receipt Date: 20110811
  Transmission Date: 20111222
  Serious: Yes (Death, Other)
  Sender: FDA-Public Use
  Company Number: PHHY2011JP72617

PATIENT
  Age: 38 Year
  Sex: Male

DRUGS (2)
  1. DOCETAXEL [Suspect]
     Indication: GASTRIC CANCER
     Dosage: 40 MG/M2/DAY
  2. FLUOROURACIL [Suspect]
     Indication: GASTRIC CANCER
     Dosage: UNK UKN, UNK

REACTIONS (5)
  - RESPIRATORY FAILURE [None]
  - NERVE INJURY [None]
  - DISEASE PROGRESSION [None]
  - PARALYSIS [None]
  - NEUROPATHY PERIPHERAL [None]
